FAERS Safety Report 4863835-7 (Version None)
Quarter: 2005Q4

REPORT INFORMATION
  Report Type: 
  Country: None (occurrence: None)
  Receive Date: 20051222
  Receipt Date: 20051005
  Transmission Date: 20060501
  Serious: No
  Sender: FDA-Public Use
  Company Number: US-GLAXOSMITHKLINE-A0577197A

PATIENT
  Age: 63 Year
  Sex: Female

DRUGS (11)
  1. FLONASE [Suspect]
     Dosage: 2SPR PER DAY
     Route: 045
     Dates: start: 20020101
  2. CLONAZEPAM [Concomitant]
  3. LOTREL [Concomitant]
  4. LIPITOR [Concomitant]
  5. SYNTHROID [Concomitant]
  6. ZONEGRAN [Concomitant]
  7. PREVACID [Concomitant]
  8. ESTRADIOL INJ [Concomitant]
  9. ATENOLOL [Concomitant]
  10. CALCIUM GLUCONATE [Concomitant]
  11. TYLENOL [Concomitant]

REACTIONS (1)
  - HEADACHE [None]
